FAERS Safety Report 19409160 (Version 3)
Quarter: 2021Q3

REPORT INFORMATION
  Report Type: Spontaneous
  Country: JP (occurrence: JP)
  Receive Date: 20210614
  Receipt Date: 20210917
  Transmission Date: 20211014
  Serious: Yes (Hospitalization)
  Sender: FDA-Public Use
  Company Number: NVSJ2021JP008422

PATIENT
  Age: 64 Year
  Sex: Female
  Weight: 50.4 kg

DRUGS (9)
  1. DOCETAXEL. [Suspect]
     Active Substance: DOCETAXEL
     Indication: BREAST CANCER
     Dosage: 4 COURSES
     Route: 065
     Dates: start: 20201209, end: 20210217
  2. SEROQUEL [Concomitant]
     Active Substance: QUETIAPINE FUMARATE
     Indication: BIPOLAR DISORDER
     Dosage: 50 MG, QD
     Route: 048
  3. TRYPTANOL [Concomitant]
     Active Substance: AMITRIPTYLINE
     Indication: BIPOLAR DISORDER
     Dosage: 25 MG, QD
     Route: 048
  4. EPIRUBICIN [Suspect]
     Active Substance: EPIRUBICIN
     Indication: BREAST CANCER
     Dosage: 4 COURSES
     Route: 065
  5. ENDOXAN [Suspect]
     Active Substance: CYCLOPHOSPHAMIDE
     Indication: BREAST CANCER
     Dosage: 4 COURSES
     Route: 065
  6. METHYCOBAL [Concomitant]
     Active Substance: METHYLCOBALAMIN
     Indication: BIPOLAR DISORDER
     Dosage: 500 MG, TID
     Route: 048
  7. FEMARA [Suspect]
     Active Substance: LETROZOLE
     Indication: BREAST CANCER
     Dosage: 2.5 MG, QD
     Route: 048
     Dates: start: 20200729, end: 20210510
  8. LIMAS [Concomitant]
     Active Substance: LITHIUM CARBONATE
     Indication: BIPOLAR DISORDER
     Dosage: 400 MG, BID
     Route: 048
  9. SILECE [Concomitant]
     Active Substance: FLUNITRAZEPAM
     Indication: BIPOLAR DISORDER
     Dosage: 2 MG, QD
     Route: 048

REACTIONS (3)
  - Interstitial lung disease [Recovering/Resolving]
  - Pyrexia [Unknown]
  - Cough [Unknown]

NARRATIVE: CASE EVENT DATE: 20210403
